FAERS Safety Report 16433959 (Version 1)
Quarter: 2019Q2

REPORT INFORMATION
  Report Type: Report from Study
  Country: None (occurrence: US)
  Receive Date: 20190614
  Receipt Date: 20190614
  Transmission Date: 20190711
  Serious: Yes (Other)
  Sender: FDA-Public Use
  Company Number: US-ABBVIE-19K-163-2814809-00

PATIENT
  Age: 68 Year
  Sex: Male

DRUGS (1)
  1. HUMIRA [Suspect]
     Active Substance: ADALIMUMAB
     Indication: CROHN^S DISEASE
     Route: 058

REACTIONS (4)
  - Large intestinal ulcer [Recovering/Resolving]
  - Large intestine polyp [Recovering/Resolving]
  - Stoma site haemorrhage [Unknown]
  - Volvulus [Recovering/Resolving]

NARRATIVE: CASE EVENT DATE: 20190212
